FAERS Safety Report 24361848 (Version 3)
Quarter: 2025Q3

REPORT INFORMATION
  Report Type: Spontaneous
  Country: US (occurrence: US)
  Receive Date: 20240925
  Receipt Date: 20250905
  Transmission Date: 20251021
  Serious: Yes (Hospitalization)
  Sender: DOMPE FARMACEUTICI
  Company Number: US-FARMAPROD-202407-2592

PATIENT
  Sex: Female

DRUGS (28)
  1. OXERVATE [Suspect]
     Active Substance: CENEGERMIN-BKBJ
     Indication: Neurotrophic keratopathy
     Route: 047
     Dates: start: 20240612, end: 20240812
  2. OXERVATE [Suspect]
     Active Substance: CENEGERMIN-BKBJ
  3. OXERVATE [Suspect]
     Active Substance: CENEGERMIN-BKBJ
     Route: 047
     Dates: start: 20240819
  4. PREDNISOLONE [Concomitant]
     Active Substance: PREDNISOLONE
  5. MOXIFLOXACIN [Concomitant]
     Active Substance: MOXIFLOXACIN
     Dates: start: 20240715, end: 20240815
  6. BLADDER SUPPLEMENT [Concomitant]
  7. VIVISCAL [Concomitant]
  8. NERVE CONTROL 911 [Concomitant]
  9. DIARRHEA CONTROL [Concomitant]
  10. RESTASIS [Concomitant]
     Active Substance: CYCLOSPORINE
  11. ASPIRIN [Concomitant]
     Active Substance: ASPIRIN
  12. GABAPENTIN [Concomitant]
     Active Substance: GABAPENTIN
  13. TYLENOL [Concomitant]
     Active Substance: ACETAMINOPHEN
  14. ROSUVASTATIN CALCIUM [Concomitant]
     Active Substance: ROSUVASTATIN CALCIUM
  15. QUETIAPINE FUMARATE [Concomitant]
     Active Substance: QUETIAPINE FUMARATE
  16. QUETIAPINE FUMARATE [Concomitant]
     Active Substance: QUETIAPINE FUMARATE
  17. METOPROLOL SUCCINATE [Concomitant]
     Active Substance: METOPROLOL SUCCINATE
  18. LOSARTAN POTASSIUM [Concomitant]
     Active Substance: LOSARTAN POTASSIUM
  19. LEVOTHYROXINE SODIUM [Concomitant]
     Active Substance: LEVOTHYROXINE SODIUM
  20. LATANOPROST [Concomitant]
     Active Substance: LATANOPROST
  21. LASIX [Concomitant]
     Active Substance: FUROSEMIDE
  22. GEMTESA [Concomitant]
     Active Substance: VIBEGRON
  23. FENOFIBRIC ACID [Concomitant]
     Active Substance: FENOFIBRIC ACID
  24. ELIQUIS [Concomitant]
     Active Substance: APIXABAN
  25. CENTRUM WOMEN 50 PLUS MINIS [Concomitant]
  26. BUPROPION [Concomitant]
     Active Substance: BUPROPION
  27. ARIPIPRAZOLE [Concomitant]
     Active Substance: ARIPIPRAZOLE
  28. DOXYCYCLINE HYCLATE [Concomitant]
     Active Substance: DOXYCYCLINE HYCLATE
     Dates: start: 20240715, end: 20240815

REACTIONS (6)
  - Peroneal nerve palsy [Unknown]
  - Fatigue [Unknown]
  - Confusional state [Unknown]
  - Eye pain [Unknown]
  - Photophobia [Unknown]
  - Rhinorrhoea [Unknown]
